FAERS Safety Report 5615753-4 (Version None)
Quarter: 2008Q1

REPORT INFORMATION
  Report Type: 
  Country: None (occurrence: None)
  Receive Date: 20080206
  Receipt Date: 20080129
  Transmission Date: 20080703
  Serious: Yes (Other)
  Sender: FDA-Public Use
  Company Number: FR-ALLERGAN-0801125US

PATIENT
  Sex: Male

DRUGS (1)
  1. BOTOX [Suspect]
     Indication: CEREBRAL PALSY
     Dosage: 290 UNITS, SINGLE
     Route: 030
     Dates: start: 20071218, end: 20071218

REACTIONS (6)
  - APATHY [None]
  - FALL [None]
  - FATIGUE [None]
  - HEAD INJURY [None]
  - MUSCULAR WEAKNESS [None]
  - VOMITING [None]
